FAERS Safety Report 6712342-5 (Version None)
Quarter: 2010Q2

REPORT INFORMATION
  Report Type: 
  Country: None (occurrence: None)
  Receive Date: 20100505
  Receipt Date: 20100423
  Transmission Date: 20101027
  Serious: Yes (Disabling)
  Sender: FDA-Public Use
  Company Number: PT-ELI_LILLY_AND_COMPANY-PT201004007588

PATIENT

DRUGS (2)
  1. FORTEO [Suspect]
     Dosage: 1 UNK, DAILY (1/D)
     Route: 065
  2. CALCIUM [Concomitant]
     Dosage: 1 UNK, DAILY (1/D)
     Route: 048

REACTIONS (3)
  - CHILLS [None]
  - MALAISE [None]
  - MYALGIA [None]
